FAERS Safety Report 24218049 (Version 1)
Quarter: 2024Q3

REPORT INFORMATION
  Report Type: Spontaneous
  Country: US (occurrence: US)
  Receive Date: 20240816
  Receipt Date: 20240816
  Transmission Date: 20241017
  Serious: No
  Sender: ROCHE
  Company Number: US-ROCHE-10000058303

PATIENT
  Age: 25 Year
  Sex: Male

DRUGS (2)
  1. HEMLIBRA [Suspect]
     Active Substance: EMICIZUMAB-KXWH
     Indication: Factor VIII deficiency
     Dosage: STRENGTH- 60MG/0.4ML, 150MG/ML
     Route: 058
     Dates: start: 202205
  2. JIVI INJECTION [Concomitant]

REACTIONS (1)
  - Allergy to arthropod bite [Unknown]

NARRATIVE: CASE EVENT DATE: 20240806
